FAERS Safety Report 8125291-5 (Version None)
Quarter: 2012Q1

REPORT INFORMATION
  Report Type: 
  Country: None (occurrence: None)
  Receive Date: 20120209
  Receipt Date: 20120201
  Transmission Date: 20120608
  Serious: Yes (Other)
  Sender: FDA-Public Use
  Company Number: US-BAYER-201039566NA

PATIENT
  Age: 43 Year
  Sex: Female

DRUGS (10)
  1. ALBUTEROL [Concomitant]
     Dosage: 90 ?G, UNK
     Route: 055
     Dates: start: 20090513
  2. RHINOCORT [Concomitant]
     Dosage: 32 ?G, UNK
     Route: 055
     Dates: start: 20090202
  3. IBUPROFEN [Concomitant]
     Dosage: 600 MG, UNK
     Route: 048
     Dates: start: 20090329
  4. YAZ [Suspect]
     Indication: PREMENSTRUAL SYNDROME
     Route: 048
     Dates: start: 20090401, end: 20090701
  5. YASMIN [Suspect]
  6. GUAIFENESIN [Concomitant]
     Dosage: 600 MG, UNK
     Route: 048
     Dates: start: 20090513
  7. YAZ [Suspect]
  8. PAXIL [Concomitant]
     Dosage: 20 MG, UNK
     Route: 048
     Dates: start: 20090218
  9. YASMIN [Suspect]
     Indication: PREMENSTRUAL SYNDROME
     Route: 048
     Dates: start: 20090401, end: 20090701
  10. PSEUDOEPHEDRINE HCL [Concomitant]
     Dosage: 30 MG, UNK
     Route: 048
     Dates: start: 20090513

REACTIONS (1)
  - PULMONARY THROMBOSIS [None]
